FAERS Safety Report 7067993-8 (Version None)
Quarter: 2010Q4

REPORT INFORMATION
  Report Type: 
  Country: None (occurrence: None)
  Receive Date: 20101028
  Receipt Date: 20101018
  Transmission Date: 20110411
  Serious: Yes (Other)
  Sender: FDA-Public Use
  Company Number: GB-SANOFI-AVENTIS-2010SA063597

PATIENT
  Age: 30 Year
  Sex: Male
  Weight: 87 kg

DRUGS (8)
  1. RIFAMPICIN [Suspect]
     Indication: ENDOCARDITIS
     Route: 042
     Dates: start: 20100903, end: 20101004
  2. DAPTOMYCIN [Suspect]
     Indication: ENDOCARDITIS
     Route: 042
     Dates: start: 20100827, end: 20100928
  3. ASPIRIN [Concomitant]
  4. BISOPROLOL FUMARATE [Concomitant]
  5. GENTAMICIN [Concomitant]
  6. PARACETAMOL [Concomitant]
  7. VANCOMYCIN [Concomitant]
  8. WARFARIN SODIUM [Concomitant]

REACTIONS (2)
  - ORCHITIS [None]
  - PYREXIA [None]
